FAERS Safety Report 25952983 (Version 2)
Quarter: 2025Q4

REPORT INFORMATION
  Report Type: Spontaneous
  Country: CH (occurrence: CH)
  Receive Date: 20251023
  Receipt Date: 20251027
  Transmission Date: 20260117
  Serious: Yes (Other)
  Sender: SANDOZ
  Company Number: CH-SANDOZ-SDZ2025CH076873

PATIENT
  Age: 39 Year
  Sex: Female

DRUGS (3)
  1. RISPERIDONE [Suspect]
     Active Substance: RISPERIDONE
     Indication: Autism spectrum disorder
     Dosage: 4 MG, QD
     Route: 065
     Dates: start: 202403, end: 202509
  2. RISPERDAL [Suspect]
     Active Substance: RISPERIDONE
     Indication: Autism spectrum disorder
     Dosage: 2 MG, QD
     Route: 065
     Dates: start: 202403
  3. LAVENDER OIL [Concomitant]
     Active Substance: LAVENDER OIL
     Indication: Product used for unknown indication
     Dosage: UNK
     Route: 065

REACTIONS (6)
  - Renal failure [Recovering/Resolving]
  - Aggression [Recovering/Resolving]
  - Blood prolactin increased [Unknown]
  - Weight increased [Recovering/Resolving]
  - Dandruff [Recovering/Resolving]
  - Dysuria [Recovering/Resolving]
